FAERS Safety Report 9062092 (Version 1)
Quarter: 2013Q1

REPORT INFORMATION
  Report Type: Spontaneous
  Country: US (occurrence: US)
  Receive Date: 20130127
  Receipt Date: 20130127
  Transmission Date: 20140127
  Serious: No
  Sender: FDA-Public Use
  Company Number: US-ALLERGAN-1212806US

PATIENT
  Age: 22 Year
  Sex: Female

DRUGS (5)
  1. PRED FORTE [Suspect]
     Indication: EYE INFECTION
     Dosage: UNK
     Route: 047
     Dates: start: 20120814
  2. SYNTHROID [Concomitant]
     Indication: AUTOIMMUNE THYROIDITIS
     Dosage: UNK
  3. MULTIVITAMIN [Concomitant]
     Indication: SUPPLEMENTATION THERAPY
     Dosage: UNK
  4. EYE DROPS NOS [Concomitant]
     Indication: DRY EYE
     Dosage: UNK
     Route: 047
  5. CLARITIN [Concomitant]
     Indication: SEASONAL ALLERGY
     Dosage: UNK UNK, PRN

REACTIONS (3)
  - Superficial injury of eye [Unknown]
  - Visual acuity reduced [Recovering/Resolving]
  - Vision blurred [Recovering/Resolving]
